FAERS Safety Report 9802200 (Version 3)
Quarter: 2014Q1

REPORT INFORMATION
  Report Type: Spontaneous
  Country: US (occurrence: US)
  Receive Date: 20140107
  Receipt Date: 20140312
  Transmission Date: 20141002
  Serious: No
  Sender: FDA-Public Use
  Company Number: US-BIOGENIDEC-2014BI000024

PATIENT
  Age: 42 Year
  Sex: Female
  Weight: 111 kg

DRUGS (10)
  1. TECFIDERA [Suspect]
     Indication: PRODUCT USED FOR UNKNOWN INDICATION
     Route: 048
  2. TECFIDERA [Suspect]
     Indication: PRODUCT USED FOR UNKNOWN INDICATION
     Route: 048
  3. TECFIDERA [Suspect]
     Indication: PRODUCT USED FOR UNKNOWN INDICATION
     Route: 048
  4. LEVOTHYROXINE [Concomitant]
     Route: 048
  5. PRILOSEC [Concomitant]
     Route: 048
  6. ASPIRIN [Concomitant]
     Route: 048
  7. VITAMIN D2 [Concomitant]
     Route: 048
  8. FISH OIL [Concomitant]
     Route: 048
  9. KLONOPIN [Concomitant]
     Route: 048
  10. PREDNISOLONE [Concomitant]

REACTIONS (8)
  - Feeling abnormal [Unknown]
  - Optic neuritis [Not Recovered/Not Resolved]
  - Asthenia [Unknown]
  - Hiccups [Unknown]
  - Abdominal discomfort [Unknown]
  - Abdominal pain [Recovered/Resolved]
  - Nausea [Recovered/Resolved]
  - Vomiting [Recovered/Resolved]
